FAERS Safety Report 4642081-6 (Version None)
Quarter: 2005Q2

REPORT INFORMATION
  Report Type: 
  Country: None (occurrence: None)
  Receive Date: 20050420
  Receipt Date: 20050407
  Transmission Date: 20051028
  Serious: Yes (Other)
  Sender: FDA-Public Use
  Company Number: 2005054258

PATIENT
  Age: 74 Year
  Sex: Male
  Weight: 97.5234 kg

DRUGS (5)
  1. VIAGRA [Suspect]
     Indication: ERECTILE DYSFUNCTION
     Dosage: (100 MG, AS NECESSARY), ORAL
     Route: 048
     Dates: end: 20041101
  2. SERETIDE MITE (FLUTICASONE PROPIONATE, SALMETEROL XINAFOATE) [Concomitant]
  3. BUDESONIDE [Concomitant]
  4. MONTELUKAST (MONTELUKAST) [Concomitant]
  5. DESLORATADINE (DESLORATADINE) [Concomitant]

REACTIONS (5)
  - CONDITION AGGRAVATED [None]
  - DRUG EFFECT DECREASED [None]
  - PROSTATE CANCER [None]
  - PROSTATIC SPECIFIC ANTIGEN INCREASED [None]
  - WEIGHT INCREASED [None]
